FAERS Safety Report 16454597 (Version 1)
Quarter: 2019Q2

REPORT INFORMATION
  Report Type: Spontaneous
  Country: ES (occurrence: ES)
  Receive Date: 20190620
  Receipt Date: 20190620
  Transmission Date: 20190711
  Serious: Yes (Other)
  Sender: FDA-Public Use
  Company Number: ES-SUN PHARMACEUTICAL INDUSTRIES LTD-2019RR-210971

PATIENT
  Age: 75 Year
  Sex: Male

DRUGS (6)
  1. ROSUVASTATIN. [Suspect]
     Active Substance: ROSUVASTATIN
     Indication: DYSLIPIDAEMIA
     Dosage: 5 MILLIGRAM, DAILY
     Route: 048
     Dates: start: 2016
  2. METAMIZOL (111A) [Concomitant]
     Active Substance: METAMIZOL SODIUM
     Indication: PAIN
     Dosage: 2 GRAM, 8/HOUR
     Route: 042
     Dates: start: 20181103
  3. TRAMADOL HIDROCLORURO (2389CH) [Concomitant]
     Active Substance: TRAMADOL
     Indication: PAIN
     Dosage: 100 MILLIGRAM, 8/HOUR
     Route: 042
     Dates: start: 20181107, end: 20181112
  4. PARACETAMOL [Suspect]
     Active Substance: ACETAMINOPHEN
     Indication: PAIN
     Dosage: 1 GRAM, 8/HOUR
     Route: 042
     Dates: start: 20181102, end: 20181112
  5. GABAPENTINA (2641A) [Suspect]
     Active Substance: GABAPENTIN
     Indication: PAIN
     Dosage: 800 MILLIGRAM, 8/HOUR
     Route: 048
     Dates: start: 20181107
  6. AMITRIPTILINA (395A) [Concomitant]
     Indication: DEPRESSION
     Dosage: 25 MILLIGRAM, 8/HOUR
     Route: 065
     Dates: start: 20181108

REACTIONS (1)
  - Hepatitis cholestatic [Recovering/Resolving]

NARRATIVE: CASE EVENT DATE: 20181112
